FAERS Safety Report 24920332 (Version 1)
Quarter: 2025Q1

REPORT INFORMATION
  Report Type: Report from Study
  Country: US (occurrence: US)
  Receive Date: 20250204
  Receipt Date: 20250204
  Transmission Date: 20250408
  Serious: No
  Sender: EXELIXIS
  Company Number: US-EXELIXIS-CABO-24073659

PATIENT
  Sex: Male

DRUGS (16)
  1. CABOMETYX [Suspect]
     Active Substance: CABOZANTINIB S-MALATE
     Indication: Renal cell carcinoma
     Dosage: 40 MG, QD
     Dates: start: 202310
  2. CABOMETYX [Suspect]
     Active Substance: CABOZANTINIB S-MALATE
     Dosage: 20 MG, QD
  3. OPDIVO [Suspect]
     Active Substance: NIVOLUMAB
     Indication: Renal cell carcinoma
     Dosage: UNK, Q2WEEKS
  4. COLCHICINE [Suspect]
     Active Substance: COLCHICINE
     Indication: Gout
  5. ALLOPURINOL [Concomitant]
     Active Substance: ALLOPURINOL
  6. LOPERAMIDE [Concomitant]
     Active Substance: LOPERAMIDE
  7. CORTISONE [Concomitant]
     Active Substance: CORTISONE
  8. OLMESARTAN [Concomitant]
     Active Substance: OLMESARTAN
  9. AMLODIPINE [Concomitant]
     Active Substance: AMLODIPINE BESYLATE
  10. HYDROCORTISONE [Concomitant]
     Active Substance: HYDROCORTISONE
  11. HYDROCHLOROTHIAZIDE [Concomitant]
     Active Substance: HYDROCHLOROTHIAZIDE
  12. IRON [Concomitant]
     Active Substance: IRON
  13. VITAMIN C [Concomitant]
     Active Substance: ASCORBIC ACID
  14. VITAMIN D NOS [Concomitant]
     Active Substance: CHOLECALCIFEROL\ERGOCALCIFEROL
  15. MINERALS\VITAMINS [Concomitant]
     Active Substance: MINERALS\VITAMINS
  16. LEVOCETIRIZINE [Concomitant]
     Active Substance: LEVOCETIRIZINE

REACTIONS (7)
  - Feeding disorder [Not Recovered/Not Resolved]
  - Glossodynia [Recovering/Resolving]
  - Liver function test abnormal [Not Recovered/Not Resolved]
  - Dry mouth [Not Recovered/Not Resolved]
  - Gout [Not Recovered/Not Resolved]
  - Peripheral swelling [Not Recovered/Not Resolved]
  - Diarrhoea [Not Recovered/Not Resolved]
